FAERS Safety Report 8330382-X (Version None)
Quarter: 2012Q2

REPORT INFORMATION
  Report Type: 
  Country: None (occurrence: None)
  Receive Date: 20120502
  Receipt Date: 20120424
  Transmission Date: 20120825
  Serious: Yes (Hospitalization)
  Sender: FDA-Public Use
  Company Number: US-FRI-1000030102

PATIENT
  Age: 84 Year
  Sex: Male

DRUGS (15)
  1. NAMENDA [Suspect]
     Dates: start: 20090101, end: 20120101
  2. GLYBURIDE [Concomitant]
     Indication: DIABETES MELLITUS
  3. NAMENDA [Suspect]
     Dosage: 20 MG
     Route: 048
     Dates: start: 20120101
  4. FINASTERIDE [Concomitant]
  5. METOPROLOL TARTRATE [Concomitant]
     Indication: HYPERTENSION
  6. CLONIDINE [Concomitant]
     Indication: HYPERTENSION
  7. NAMENDA [Suspect]
     Indication: DEMENTIA
     Dosage: 5 MG
     Route: 048
     Dates: start: 20090101, end: 20090101
  8. FLOMAX [Concomitant]
     Indication: BENIGN PROSTATIC HYPERPLASIA
  9. CARBIDOPA AND LEVODOPA [Concomitant]
  10. NAMENDA [Suspect]
     Dosage: 10 MG
     Route: 048
     Dates: start: 20090101, end: 20090101
  11. NAMENDA [Suspect]
     Dosage: 5MG AM/10MG PM
     Route: 048
     Dates: start: 20090101, end: 20090101
  12. NAMENDA [Suspect]
     Dosage: 40 MG
     Route: 048
     Dates: start: 20120101, end: 20120101
  13. EXELON [Concomitant]
  14. WARFARIN SODIUM [Concomitant]
  15. LISINOPRIL [Concomitant]
     Indication: HYPERTENSION

REACTIONS (3)
  - BLOOD PRESSURE INCREASED [None]
  - ACCIDENTAL OVERDOSE [None]
  - ANAL ABSCESS [None]
